FAERS Safety Report 17094304 (Version 3)
Quarter: 2020Q1

REPORT INFORMATION
  Report Type: Report from Study
  Country: DE (occurrence: DE)
  Receive Date: 20191129
  Receipt Date: 20200229
  Transmission Date: 20200409
  Serious: Yes (Hospitalization)
  Sender: FDA-Public Use
  Company Number: DE-TAKEDA-2019TUS067772

PATIENT
  Sex: Male

DRUGS (6)
  1. VEDOLIZUMAB [Suspect]
     Active Substance: VEDOLIZUMAB
     Indication: COLITIS ULCERATIVE
     Dosage: UNK
     Route: 042
     Dates: start: 20180306, end: 20190215
  2. TOFACITINIB [Concomitant]
     Active Substance: TOFACITINIB
     Dosage: UNK
  3. MESALAZIN [Concomitant]
     Active Substance: MESALAMINE
     Dosage: UNK
  4. BUDESONID [Concomitant]
     Active Substance: BUDESONIDE
     Dosage: UNK
  5. PREDNISOLON                        /00016201/ [Concomitant]
     Active Substance: PREDNISOLONE
     Dosage: UNK
  6. ADALIMUMAB [Concomitant]
     Active Substance: ADALIMUMAB
     Dosage: UNK
     Dates: start: 201907

REACTIONS (1)
  - Colitis ulcerative [Recovered/Resolved]

NARRATIVE: CASE EVENT DATE: 20190814
